FAERS Safety Report 22278969 (Version 2)
Quarter: 2023Q2

REPORT INFORMATION
  Report Type: Spontaneous
  Country: US (occurrence: US)
  Receive Date: 20230503
  Receipt Date: 20230609
  Transmission Date: 20230721
  Serious: No
  Sender: FDA-Public Use
  Company Number: US-PFIZER INC-202300174015

PATIENT
  Age: 76 Year
  Sex: Female
  Weight: 83.01 kg

DRUGS (1)
  1. IBRANCE [Suspect]
     Active Substance: PALBOCICLIB
     Indication: Breast cancer
     Dosage: 75 MG, CYCLIC (ONE TABLET DAILY FOR 3 WEEKS AND THEN 1 WEEK OFF, ONCE A DAY)
     Dates: start: 202212

REACTIONS (3)
  - Neoplasm progression [Not Recovered/Not Resolved]
  - Chest pain [Not Recovered/Not Resolved]
  - Rash [Unknown]

NARRATIVE: CASE EVENT DATE: 20230301
